FAERS Safety Report 5606681-9 (Version None)
Quarter: 2008Q1

REPORT INFORMATION
  Report Type: 
  Country: None (occurrence: None)
  Receive Date: 20080129
  Receipt Date: 20070504
  Transmission Date: 20080703
  Serious: No
  Sender: FDA-Public Use
  Company Number: A0650144A

PATIENT
  Sex: Female

DRUGS (1)
  1. COMBIVIR [Suspect]
     Indication: ACCIDENTAL NEEDLE STICK
     Route: 048

REACTIONS (2)
  - FATIGUE [None]
  - HYPOAESTHESIA [None]
